FAERS Safety Report 19041481 (Version 1)
Quarter: 2021Q1

REPORT INFORMATION
  Report Type: Report from Study
  Country: BR (occurrence: BR)
  Receive Date: 20210322
  Receipt Date: 20210322
  Transmission Date: 20210420
  Serious: Yes (Other)
  Sender: FDA-Public Use
  Company Number: BR-TAKEDA-2021TUS017346

PATIENT

DRUGS (1)
  1. HUMAN NORMAL IMMUNOGLOBULIN [Suspect]
     Active Substance: HUMAN IMMUNOGLOBULIN G
     Indication: PRODUCT USED FOR UNKNOWN INDICATION
     Dosage: UNK
     Route: 042

REACTIONS (10)
  - Adverse drug reaction [Unknown]
  - Infection [Unknown]
  - Discomfort [Unknown]
  - Unevaluable event [Unknown]
  - Product dose omission issue [Unknown]
  - Respiratory disorder [Unknown]
  - Headache [Unknown]
  - Malaise [Unknown]
  - Disease recurrence [Unknown]
  - Nausea [Unknown]
